FAERS Safety Report 24745521 (Version 1)
Quarter: 2024Q4

REPORT INFORMATION
  Report Type: Spontaneous
  Country: FR (occurrence: FR)
  Receive Date: 20241218
  Receipt Date: 20241218
  Transmission Date: 20250115
  Serious: Yes (Hospitalization, Other)
  Sender: ALEXION PHARMACEUTICALS
  Company Number: FR-AFSSAPS-PC2024001022

PATIENT
  Age: 51 Year

DRUGS (7)
  1. QUETIAPINE FUMARATE [Suspect]
     Active Substance: QUETIAPINE FUMARATE
     Indication: Product used for unknown indication
     Dosage: 100 MILLIGRAM, QD
  2. QUETIAPINE FUMARATE [Suspect]
     Active Substance: QUETIAPINE FUMARATE
     Dosage: 50 MILLIGRAM, QD
  3. LOXAPINE [Suspect]
     Active Substance: LOXAPINE
     Indication: Product used for unknown indication
     Dosage: 25 MILLIGRAM, QD
  4. LOXAPINE [Suspect]
     Active Substance: LOXAPINE
     Dosage: 75 MILLIGRAM, QD
  5. MIANSERIN [Concomitant]
     Active Substance: MIANSERIN
  6. RISPERDAL [Concomitant]
     Active Substance: RISPERIDONE
  7. TROPATEPINE HYDROCHLORIDE [Concomitant]
     Active Substance: TROPATEPINE HYDROCHLORIDE

REACTIONS (8)
  - Neuroleptic malignant syndrome [Recovered/Resolved]
  - Extrapyramidal disorder [Recovered/Resolved]
  - Alpha haemolytic streptococcal infection [Unknown]
  - Lower respiratory tract congestion [Unknown]
  - Dehydration [Unknown]
  - Staphylococcal infection [Not Recovered/Not Resolved]
  - Proteus test positive [Unknown]
  - HTLV-1 test positive [Unknown]
